FAERS Safety Report 10927308 (Version 4)
Quarter: 2015Q3

REPORT INFORMATION
  Report Type: Spontaneous
  Country: KR (occurrence: KR)
  Receive Date: 20150318
  Receipt Date: 20150929
  Transmission Date: 20151125
  Serious: Yes (Death, Hospitalization)
  Sender: FDA-Public Use
  Company Number: KR-009507513-1503KOR006775

PATIENT
  Age: 70 Year
  Sex: Male
  Weight: 74 kg

DRUGS (7)
  1. ROCURONIUM BROMIDE. [Suspect]
     Active Substance: ROCURONIUM BROMIDE
     Indication: MUSCLE RELAXANT THERAPY
     Dosage: 50 MG, ONCE
     Route: 042
     Dates: start: 20141120, end: 20141120
  2. TRIAXON [Concomitant]
     Indication: INFECTION PROPHYLAXIS
     Dosage: UNK, QD
     Route: 041
     Dates: start: 20141120
  3. TIROPA (TIROPRAMIDE HYDROCHLORIDE) [Concomitant]
     Indication: DYSURIA
     Dosage: UNK, TID
     Route: 048
     Dates: start: 20141122
  4. SELENASE [Concomitant]
     Indication: POSTOPERATIVE CARE
     Dosage: UNK, BID
     Route: 041
     Dates: start: 20141120, end: 20141127
  5. PORTALAK [Concomitant]
     Indication: CONSTIPATION PROPHYLAXIS
     Dosage: UNK, QD
     Route: 048
     Dates: start: 20141121
  6. NORZYME [Concomitant]
     Indication: PROPHYLAXIS
     Dosage: UNK, TID
     Route: 048
     Dates: start: 20141120
  7. BRIDION [Suspect]
     Active Substance: SUGAMMADEX
     Indication: NEUROMUSCULAR BLOCKADE REVERSAL
     Dosage: 2 MG/KG, 148 MG, ONCE
     Route: 042
     Dates: start: 20141120, end: 20141120

REACTIONS (2)
  - Respiratory disorder [Fatal]
  - Abdominal pain [Recovering/Resolving]

NARRATIVE: CASE EVENT DATE: 20141209
